FAERS Safety Report 9145403 (Version 2)
Quarter: 2013Q2

REPORT INFORMATION
  Report Type: Spontaneous
  Country: US (occurrence: US)
  Receive Date: 20130307
  Receipt Date: 20130408
  Transmission Date: 20140414
  Serious: Yes (Death)
  Sender: FDA-Public Use
  Company Number: US-CELGENEUS-163-21880-13030561

PATIENT
  Age: 81 Year
  Sex: Male

DRUGS (9)
  1. REVLIMID [Suspect]
     Indication: MYELODYSPLASTIC SYNDROME
     Dosage: 5 MILLIGRAM
     Route: 048
     Dates: start: 20130222, end: 20130226
  2. REVLIMID [Suspect]
     Indication: REFRACTORY ANAEMIA WITH AN EXCESS OF BLASTS
  3. VIDAZA [Suspect]
     Indication: PRODUCT USED FOR UNKNOWN INDICATION
     Route: 065
  4. ALLOPURINOL [Concomitant]
     Indication: GOUT
     Dosage: 300 MILLIGRAM
     Route: 048
     Dates: start: 201302, end: 20130227
  5. ALLOPURINOL [Concomitant]
     Indication: JOINT SWELLING
  6. LASIX [Concomitant]
     Indication: LOCAL SWELLING
     Dosage: 40 MILLIGRAM
     Route: 048
     Dates: start: 201302, end: 20130227
  7. ATENOLOL [Concomitant]
     Indication: HYPERTENSION
     Dosage: 100 MILLIGRAM
     Route: 048
     Dates: start: 2011, end: 20130227
  8. HYDROCODONE [Concomitant]
     Indication: PAIN
     Route: 048
     Dates: end: 20130227
  9. PREDNISONE [Concomitant]
     Indication: PRODUCT USED FOR UNKNOWN INDICATION
     Route: 048
     Dates: start: 20130220, end: 20130227

REACTIONS (1)
  - Myelodysplastic syndrome [Fatal]
